FAERS Safety Report 6719382-0 (Version None)
Quarter: 2010Q2

REPORT INFORMATION
  Report Type: 
  Country: None (occurrence: None)
  Receive Date: 20100511
  Receipt Date: 20100503
  Transmission Date: 20101027
  Serious: Yes (Hospitalization, Other)
  Sender: FDA-Public Use
  Company Number: US-ASTRAZENECA-2010SE19923

PATIENT
  Sex: Female

DRUGS (17)
  1. SEROQUEL [Suspect]
     Indication: OBSESSIVE-COMPULSIVE DISORDER
     Route: 048
     Dates: start: 20060101
  2. SEROQUEL [Suspect]
     Route: 048
  3. KLONOPIN [Concomitant]
     Route: 065
  4. GEODON [Concomitant]
     Route: 065
  5. LAMICTAL CD [Concomitant]
     Route: 065
  6. PROZAC [Concomitant]
     Route: 065
  7. CYMBALTA [Concomitant]
     Route: 065
  8. SYNTHROID [Concomitant]
     Route: 065
  9. HEADACHE MEDICATIONS [Concomitant]
     Route: 065
  10. UNITHROID [Concomitant]
     Route: 065
  11. LEVOTHYROXINE SODIUM [Concomitant]
     Route: 065
  12. CLONAZEPAM [Concomitant]
     Route: 065
  13. FLUOXETINE [Concomitant]
     Route: 065
  14. ZALEPLON [Concomitant]
     Route: 065
  15. MOTRIN [Concomitant]
     Route: 065
  16. NAPROXIN [Concomitant]
     Route: 065
  17. ZALPEPLON [Concomitant]
     Route: 065

REACTIONS (6)
  - ABNORMAL DREAMS [None]
  - FATIGUE [None]
  - HOMICIDAL IDEATION [None]
  - HUNGER [None]
  - PSYCHOTIC DISORDER [None]
  - WEIGHT INCREASED [None]
